FAERS Safety Report 6422768-5 (Version None)
Quarter: 2009Q4

REPORT INFORMATION
  Report Type: 
  Country: None (occurrence: None)
  Receive Date: 20091102
  Receipt Date: 20091020
  Transmission Date: 20100525
  Serious: Yes (Other)
  Sender: FDA-Public Use
  Company Number: CA-JNJFOC-20090908937

PATIENT
  Age: 60 Year
  Sex: Female

DRUGS (6)
  1. NIZORAL [Suspect]
     Route: 061
     Dates: start: 20090909, end: 20090913
  2. NIZORAL [Suspect]
     Indication: DERMATITIS
     Route: 061
     Dates: start: 20090909, end: 20090913
  3. ANTIHYPERTENSIVES [Concomitant]
     Indication: BLOOD PRESSURE
     Route: 065
  4. ALL OTHER THERAPEUTIC PRODUCTS [Concomitant]
     Route: 048
  5. VITAMINS (NOS) [Concomitant]
     Route: 065
  6. OMEGA 3 SUPPLEMENT [Concomitant]
     Route: 065

REACTIONS (3)
  - APPLICATION SITE DISCOLOURATION [None]
  - SEBORRHOEIC DERMATITIS [None]
  - WRONG TECHNIQUE IN DRUG USAGE PROCESS [None]
